FAERS Safety Report 8307824-9 (Version None)
Quarter: 2012Q2

REPORT INFORMATION
  Report Type: 
  Country: None (occurrence: None)
  Receive Date: 20120424
  Receipt Date: 20120410
  Transmission Date: 20120825
  Serious: Yes (Hospitalization)
  Sender: FDA-Public Use
  Company Number: US-ACTELION-A-US2011-57689

PATIENT

DRUGS (5)
  1. ADCIRCA [Concomitant]
  2. EPOPROSTENOL SODIUM [Suspect]
     Dosage: 8 NG/KG, PER MIN
     Route: 042
  3. EPOPROSTENOL SODIUM [Suspect]
     Indication: PULMONARY ARTERIAL HYPERTENSION
     Dosage: 18 NG/KG, PER MIN
     Route: 042
     Dates: start: 20110307
  4. SILDENAFIL [Concomitant]
     Dosage: UNK
     Dates: start: 20110613
  5. TRACLEER [Suspect]
     Indication: PULMONARY ARTERIAL HYPERTENSION
     Dosage: UNK
     Route: 048
     Dates: start: 20070505

REACTIONS (8)
  - HYPOTENSION [None]
  - PYREXIA [None]
  - VOMITING [None]
  - MALAISE [None]
  - DIARRHOEA [None]
  - INFECTION [None]
  - GASTROENTERITIS VIRAL [None]
  - NAUSEA [None]
